FAERS Safety Report 8419396-9 (Version None)
Quarter: 2012Q2

REPORT INFORMATION
  Report Type: 
  Country: None (occurrence: None)
  Receive Date: 20120607
  Receipt Date: 20120531
  Transmission Date: 20120825
  Serious: Yes (Hospitalization)
  Sender: FDA-Public Use
  Company Number: US-GLAXOSMITHKLINE-A0875906A

PATIENT
  Age: 46 Year
  Sex: Female

DRUGS (1)
  1. AVANDIA [Suspect]
     Indication: TYPE 2 DIABETES MELLITUS
     Dosage: 4MG PER DAY
     Route: 048
     Dates: start: 20060301, end: 20081028

REACTIONS (3)
  - ANGINA PECTORIS [None]
  - CORONARY ARTERY DISEASE [None]
  - CARDIAC FAILURE CONGESTIVE [None]
